FAERS Safety Report 4310468-7 (Version None)
Quarter: 2004Q1

REPORT INFORMATION
  Report Type: 
  Country: None (occurrence: None)
  Receive Date: 20040303
  Receipt Date: 20031014
  Transmission Date: 20041129
  Serious: Yes (Hospitalization)
  Sender: FDA-Public Use
  Company Number: SE-ROCHE-349116

PATIENT
  Age: 64 Year
  Sex: Female
  Weight: 57.9 kg

DRUGS (10)
  1. DACLIZUMAB [Suspect]
     Route: 042
     Dates: start: 20030521
  2. DACLIZUMAB [Suspect]
     Dosage: FOR 4 DOSES.
     Route: 042
     Dates: start: 20030604, end: 20030704
  3. MYCOPHENOLATE MOFETIL [Suspect]
     Route: 048
     Dates: start: 20030521
  4. SIROLIMUS [Suspect]
     Route: 048
     Dates: start: 20030522
  5. PREDNISOLONE [Suspect]
     Route: 048
     Dates: start: 20030522
  6. AMLODIPIN [Concomitant]
     Route: 048
     Dates: start: 20011215
  7. METOPROLOL [Concomitant]
     Route: 048
     Dates: start: 20030523
  8. GANCICLOVIR [Concomitant]
     Route: 048
     Dates: start: 20030526
  9. ATORVASTATIN [Concomitant]
     Route: 048
     Dates: start: 20010606
  10. FUROSEMIDE [Concomitant]
     Route: 048
     Dates: start: 20031103

REACTIONS (5)
  - DIARRHOEA [None]
  - PYREXIA [None]
  - SEPSIS [None]
  - UROSEPSIS [None]
  - VOMITING [None]
